FAERS Safety Report 16932133 (Version 1)
Quarter: 2019Q4

REPORT INFORMATION
  Report Type: Report from Study
  Country: US (occurrence: US)
  Receive Date: 20191017
  Receipt Date: 20191017
  Transmission Date: 20200122
  Serious: Yes (Hospitalization)
  Sender: FDA-Public Use
  Company Number: US-GILEAD-2019-0433511

PATIENT
  Age: 51 Year
  Sex: Male

DRUGS (12)
  1. ACYCLOVIR [ACICLOVIR SODIUM] [Concomitant]
     Active Substance: ACYCLOVIR
  2. FOLIC ACID. [Concomitant]
     Active Substance: FOLIC ACID
  3. MAGNESIUM [Concomitant]
     Active Substance: MAGNESIUM
  4. AMLODIPINE [Concomitant]
     Active Substance: AMLODIPINE BESYLATE
  5. METOPROLOL. [Concomitant]
     Active Substance: METOPROLOL
  6. NOXAFIL [Concomitant]
     Active Substance: POSACONAZOLE
  7. MEPRON [Concomitant]
     Active Substance: ATOVAQUONE
  8. WARFARIN [Concomitant]
     Active Substance: WARFARIN
  9. PREDNISONE. [Concomitant]
     Active Substance: PREDNISONE
  10. AZTREONAM LYSINE [Suspect]
     Active Substance: AZTREONAM LYSINE
     Indication: CYSTIC FIBROSIS
     Dosage: 75 MG, TID FOR ONE MONTH ON, THEN ONE MONTH OFF
     Route: 055
     Dates: start: 20170303
  11. OMEPRAZOLE. [Concomitant]
     Active Substance: OMEPRAZOLE
  12. PROGRAF [Concomitant]
     Active Substance: TACROLIMUS

REACTIONS (1)
  - Infection [Unknown]

NARRATIVE: CASE EVENT DATE: 20190905
